FAERS Safety Report 9414374 (Version 2)
Quarter: 2013Q3

REPORT INFORMATION
  Report Type: Report from Study
  Country: US (occurrence: US)
  Receive Date: 20130723
  Receipt Date: 20130812
  Transmission Date: 20140515
  Serious: Yes (Life-Threatening, Hospitalization, Disabling, Other)
  Sender: FDA-Public Use
  Company Number: US-ASTELLAS-2013EU006291

PATIENT
  Age: 32 Year
  Sex: Male
  Weight: 119.3 kg

DRUGS (21)
  1. BLINDED FIDAXOMICIN [Suspect]
     Indication: PROPHYLAXIS
     Dosage: 1 DF, UID/QD
     Route: 048
     Dates: start: 20130419, end: 20130513
  2. TACROLIMUS SYSTEMIC [Suspect]
     Indication: IMMUNOSUPPRESSION
     Dosage: 0.5 MG, Q12 HOURS
     Route: 048
     Dates: start: 20130603
  3. TACROLIMUS SYSTEMIC [Suspect]
     Dosage: 1 MG, Q12 HOURS
     Route: 048
     Dates: start: 20130603
  4. TACROLIMUS SYSTEMIC [Suspect]
     Dosage: 0.5 MG, Q12 HOURS
     Route: 048
     Dates: start: 20130506, end: 20130624
  5. ACYCLOVIR [Concomitant]
     Indication: EVIDENCE BASED TREATMENT
     Dosage: 800 MG, BID
     Route: 048
     Dates: start: 20130318
  6. ALBUTEROL SULFATE HFA [Concomitant]
     Indication: ASTHMA
     Dosage: 90 ?G, QID
     Route: 055
     Dates: start: 20130624
  7. ATOVAQUONE [Concomitant]
     Indication: ANTIFUNGAL PROPHYLAXIS
     Dosage: 10 ML, QD
     Route: 048
     Dates: start: 20130405, end: 20130628
  8. ATOVAQUONE [Concomitant]
     Indication: ANTIFUNGAL PROPHYLAXIS
  9. CLOBETASOL [Concomitant]
     Indication: RASH
     Dosage: 5 %, N/A
     Route: 061
     Dates: start: 20130613
  10. DRONABINOL [Concomitant]
     Indication: GRAFT VERSUS HOST DISEASE
     Dosage: 2.5 MG, BID
     Route: 048
     Dates: start: 20130628
  11. LEVOFLOXACIN [Concomitant]
     Indication: PROPHYLAXIS
     Dosage: 500 MG, QD
     Route: 048
     Dates: start: 20130628
  12. MAGNESIUM LACTATE [Concomitant]
     Indication: CONSTIPATION
     Dosage: 84 MG, TID
     Route: 048
     Dates: start: 20130506
  13. METOPROLOL SUCCINATE [Concomitant]
     Indication: PROPHYLAXIS
     Dosage: 25 MG, QD
     Route: 048
     Dates: start: 20130405
  14. PANTOPRAZOLE [Concomitant]
     Indication: PROPHYLAXIS
     Dosage: 40 MG, QD
     Route: 048
     Dates: start: 20130617
  15. PREDNISONE [Concomitant]
     Indication: PROPHYLAXIS
     Dosage: 10 MG, QD
     Route: 048
     Dates: start: 20130617, end: 20130624
  16. PREDNISONE [Concomitant]
     Dosage: 20 MG, QD
     Route: 048
     Dates: start: 20130617
  17. SENNOSIDES A+B [Concomitant]
     Indication: CONSTIPATION
     Dosage: 17.2 MG, HS
     Route: 048
     Dates: start: 20130506
  18. BACTRIM DS [Concomitant]
     Indication: PROPHYLAXIS
     Dosage: 160 MG, Q3WEEK
     Route: 048
     Dates: start: 20130617
  19. URSODIOL [Concomitant]
     Indication: GRAFT VERSUS HOST DISEASE
     Dosage: 300 MG, TID
     Route: 048
     Dates: start: 20130506, end: 20130624
  20. URSODIOL [Concomitant]
     Indication: IMMUNOSUPPRESSION
  21. VORICONAZOLE [Concomitant]
     Indication: ANTIBIOTIC PROPHYLAXIS
     Dosage: 200 MG, Q12H
     Route: 048
     Dates: start: 20130506

REACTIONS (1)
  - Graft versus host disease in intestine [Recovered/Resolved]
